FAERS Safety Report 7892488-9 (Version None)
Quarter: 2011Q4

REPORT INFORMATION
  Report Type: 
  Country: None (occurrence: None)
  Receive Date: 20111102
  Receipt Date: 20111026
  Transmission Date: 20120403
  Serious: Yes (Hospitalization, Other)
  Sender: FDA-Public Use
  Company Number: 2011SP041628

PATIENT
  Sex: Female

DRUGS (3)
  1. NUVARING [Suspect]
     Indication: PREGNANCY
     Dosage: UNK;TRPL
     Dates: start: 20101017, end: 20101119
  2. PROGESTERONE [Suspect]
     Indication: MENOMETRORRHAGIA
     Dosage: UNK;TRMA
     Dates: start: 20110101, end: 20110601
  3. PROGESTERONE [Suspect]
     Indication: PLACENTAL DISORDER
     Dosage: UNK;TRMA
     Dates: start: 20110101, end: 20110601

REACTIONS (3)
  - LOW BIRTH WEIGHT BABY [None]
  - FOETAL EXPOSURE DURING PREGNANCY [None]
  - PREMATURE BABY [None]
